FAERS Safety Report 17734984 (Version 1)
Quarter: 2020Q2

REPORT INFORMATION
  Report Type: Spontaneous
  Country: US (occurrence: US)
  Receive Date: 20200501
  Receipt Date: 20200501
  Transmission Date: 20200714
  Serious: No
  Sender: FDA-Public Use
  Company Number: US-RADIUS HEALTH INC.-2020US000809

PATIENT
  Sex: Female

DRUGS (4)
  1. TYMLOS [Suspect]
     Active Substance: ABALOPARATIDE
     Indication: OSTEOPOROSIS POSTMENOPAUSAL
     Dosage: 80 MCG, QD
     Route: 058
  2. TYMLOS [Suspect]
     Active Substance: ABALOPARATIDE
     Indication: OSTEOPOROSIS
  3. PREDNISONE. [Suspect]
     Active Substance: PREDNISONE
     Indication: PAIN
  4. MEDROL [Suspect]
     Active Substance: METHYLPREDNISOLONE
     Indication: PAIN

REACTIONS (5)
  - Malaise [Recovered/Resolved]
  - Product storage error [Not Recovered/Not Resolved]
  - Dizziness [Not Recovered/Not Resolved]
  - Headache [Recovered/Resolved]
  - Stress [Not Recovered/Not Resolved]
